FAERS Safety Report 14364431 (Version 4)
Quarter: 2018Q1

REPORT INFORMATION
  Report Type: Spontaneous
  Country: US (occurrence: US)
  Receive Date: 20180108
  Receipt Date: 20180130
  Transmission Date: 20180509
  Serious: Yes (Hospitalization)
  Sender: FDA-Public Use
  Company Number: US-PFIZER INC-2018001331

PATIENT
  Age: 83 Year
  Sex: Female
  Weight: 51 kg

DRUGS (1)
  1. ATROPINE SULFATE/DIPHENOXYLATE HYDROCHLORIDE [Suspect]
     Active Substance: ATROPINE SULFATE\DIPHENOXYLATE HYDROCHLORIDE
     Indication: DIARRHOEA
     Dosage: 1 DF, AS NEEDED (2 TIMES A DAY AS NECESSARY)/(TOOK ONE AND IT STOPPED IT; 2.5-0.025)
     Route: 048
     Dates: start: 20120224, end: 2017

REACTIONS (5)
  - Abdominal adhesions [None]
  - Eye disorder [Not Recovered/Not Resolved]
  - Product use issue [None]
  - Small intestinal obstruction [Recovered/Resolved]
  - Postoperative adhesion [None]

NARRATIVE: CASE EVENT DATE: 20120224
